FAERS Safety Report 4596624-1 (Version None)
Quarter: 2005Q1

REPORT INFORMATION
  Report Type: 
  Country: None (occurrence: None)
  Receive Date: 20050228
  Receipt Date: 20050215
  Transmission Date: 20050727
  Serious: Yes (Life-Threatening, Hospitalization, Other)
  Sender: FDA-Public Use
  Company Number: 2005020863

PATIENT
  Sex: Male

DRUGS (4)
  1. GEODON [Suspect]
     Indication: AGITATION
     Dosage: (10 MG), INTRAMUSCULAR
     Route: 030
  2. BENADRYL [Suspect]
     Indication: ILL-DEFINED DISORDER
  3. LEVOFLOXACIN [Concomitant]
  4. RIVASTIGMINE TARTRATE [Concomitant]

REACTIONS (4)
  - COMA [None]
  - DYSPNOEA [None]
  - IATROGENIC INJURY [None]
  - UNEVALUABLE EVENT [None]
